FAERS Safety Report 21556440 (Version 1)
Quarter: 2022Q4

REPORT INFORMATION
  Report Type: Spontaneous
  Country: JP (occurrence: JP)
  Receive Date: 20221104
  Receipt Date: 20221104
  Transmission Date: 20230113
  Serious: Yes (Hospitalization)
  Sender: FDA-Public Use
  Company Number: JP-ELI_LILLY_AND_COMPANY-JP202210013727

PATIENT
  Age: 21 Year
  Sex: Male

DRUGS (1)
  1. ATOMOXETINE HYDROCHLORIDE [Suspect]
     Active Substance: ATOMOXETINE HYDROCHLORIDE
     Indication: Attention deficit hyperactivity disorder
     Dosage: 80 MG, DAILY
     Route: 048

REACTIONS (3)
  - Serotonin syndrome [Recovered/Resolved]
  - Suicide attempt [Unknown]
  - Intentional overdose [Unknown]
